FAERS Safety Report 5113454-2 (Version None)
Quarter: 2006Q3

REPORT INFORMATION
  Report Type: 
  Country: None (occurrence: None)
  Receive Date: 20060920
  Receipt Date: 20060914
  Transmission Date: 20061208
  Serious: Yes (Death, Hospitalization, Other)
  Sender: FDA-Public Use
  Company Number: 008-CTHAL-05040313

PATIENT
  Age: 72 Year
  Sex: Male
  Weight: 75 kg

DRUGS (2)
  1. THALIDOMIDE (THALIDOMIDE) (CAPSULES) [Suspect]
     Indication: MULTIPLE MYELOMA
     Dosage: 200 MG, QD, ORAL
     Route: 048
     Dates: start: 20050225, end: 20050405
  2. DEXAMETHASONE TAB [Suspect]
     Indication: MULTIPLE MYELOMA
     Dosage: 40 MG, QD, D1-4, 9-12, 17-20, ORAL
     Route: 048
     Dates: start: 20050225, end: 20050405

REACTIONS (24)
  - AGITATION [None]
  - AMYLOIDOSIS [None]
  - ASPIRATION [None]
  - ATELECTASIS [None]
  - BLOOD BICARBONATE DECREASED [None]
  - BLOOD CHLORIDE INCREASED [None]
  - BLOOD PRESSURE DECREASED [None]
  - CARDIAC AMYLOIDOSIS [None]
  - CARDIO-RESPIRATORY ARREST [None]
  - CARDIOMEGALY [None]
  - CLOSTRIDIUM DIFFICILE COLITIS [None]
  - CONDITION AGGRAVATED [None]
  - CONFUSIONAL STATE [None]
  - DEHYDRATION [None]
  - DRY SKIN [None]
  - GAMMOPATHY [None]
  - NEUROPATHY [None]
  - OEDEMA [None]
  - PERICARDIAL EFFUSION [None]
  - PULMONARY CONGESTION [None]
  - RENAL FAILURE [None]
  - RESTRICTIVE CARDIOMYOPATHY [None]
  - SEPSIS [None]
  - URINE OUTPUT DECREASED [None]
